FAERS Safety Report 7296740-X (Version None)
Quarter: 2011Q1

REPORT INFORMATION
  Report Type: 
  Country: None (occurrence: None)
  Receive Date: 20110204
  Receipt Date: 20110123
  Transmission Date: 20110831
  Serious: Yes (Other)
  Sender: FDA-Public Use
  Company Number: IL-JNJFOC-20110106244

PATIENT
  Age: 51 Year
  Sex: Male

DRUGS (4)
  1. DACOGEN [Suspect]
     Indication: MYELODYSPLASTIC SYNDROME
     Dosage: INTRAVENOUS
     Route: 042
     Dates: start: 20100901
  2. B12 (CYANOCOBALAMIN-TANNIN COMPLEX) TABLET [Concomitant]
  3. CIPRAMIL (CITALOPRAM) UNSPECIFIED [Concomitant]
  4. ZYBAN (BUPROPION HYDROCHLORIDE) UNSPECIFIED [Concomitant]

REACTIONS (2)
  - PARAPARESIS [None]
  - DEMYELINATION [None]
